FAERS Safety Report 19718329 (Version 4)
Quarter: 2021Q3

REPORT INFORMATION
  Report Type: Other
  Country: US (occurrence: US)
  Receive Date: 20210819
  Receipt Date: 20210917
  Transmission Date: 20211014
  Serious: Yes (Other)
  Sender: FDA-Public Use
  Company Number: US-ROCHE-2893426

PATIENT
  Age: 68 Year
  Sex: Male

DRUGS (23)
  1. XANAX [Concomitant]
     Active Substance: ALPRAZOLAM
     Indication: ANXIETY
     Route: 048
  2. VITAMIN C [Concomitant]
     Active Substance: ASCORBIC ACID
     Route: 048
  3. Q10 [Concomitant]
     Active Substance: DIETARY SUPPLEMENT\UBIDECARENONE
     Route: 048
  4. TESTIM [Concomitant]
     Active Substance: TESTOSTERONE
     Route: 061
  5. TYLENOL [Concomitant]
     Active Substance: ACETAMINOPHEN
     Route: 048
  6. ZESTRIL [Concomitant]
     Active Substance: LISINOPRIL
     Route: 048
  7. CLARITIN [Concomitant]
     Active Substance: LORATADINE
     Route: 048
  8. PLAVIX [Concomitant]
     Active Substance: CLOPIDOGREL BISULFATE
  9. LIPITOR [Concomitant]
     Active Substance: ATORVASTATIN CALCIUM
     Route: 048
  10. ESBRIET [Suspect]
     Active Substance: PIRFENIDONE
     Indication: PULMONARY FIBROSIS
     Route: 048
  11. NIACIN. [Concomitant]
     Active Substance: NIACIN
     Route: 048
  12. RESTORIL [Concomitant]
     Active Substance: TEMAZEPAM
     Route: 048
  13. ESBRIET [Suspect]
     Active Substance: PIRFENIDONE
     Indication: PULMONARY FIBROSIS
     Dosage: TAKE ONE TABLE BY MOUTH THREE TIMES DAILY WITH MEALS
     Route: 048
  14. COREG [Concomitant]
     Active Substance: CARVEDILOL
     Route: 048
  15. ASPIRIN. [Concomitant]
     Active Substance: ASPIRIN
     Route: 048
  16. FLOVENT HFA [Concomitant]
     Active Substance: FLUTICASONE PROPIONATE
     Route: 045
  17. TOPROL XL [Concomitant]
     Active Substance: METOPROLOL SUCCINATE
     Route: 048
  18. PERCOCET [Concomitant]
     Active Substance: ACETAMINOPHEN\OXYCODONE HYDROCHLORIDE
  19. ACETAMINOPHEN. [Concomitant]
     Active Substance: ACETAMINOPHEN
     Route: 048
  20. APIXABAN [Concomitant]
     Active Substance: APIXABAN
  21. TESSALON [Concomitant]
     Active Substance: BENZONATATE
     Indication: COUGH
     Route: 048
  22. TAMBOCOR [Concomitant]
     Active Substance: FLECAINIDE ACETATE
     Route: 048
  23. FLOMAX [Concomitant]
     Active Substance: TAMSULOSIN HYDROCHLORIDE
     Route: 048

REACTIONS (6)
  - Drug intolerance [Unknown]
  - Fatigue [Recovered/Resolved]
  - Dyspnoea [Unknown]
  - Atrial fibrillation [Unknown]
  - Cough [Unknown]
  - Fatigue [Unknown]

NARRATIVE: CASE EVENT DATE: 20210802
